FAERS Safety Report 7257936-6 (Version None)
Quarter: 2011Q1

REPORT INFORMATION
  Report Type: 
  Country: None (occurrence: None)
  Receive Date: 20110129
  Receipt Date: 20100713
  Transmission Date: 20110831
  Serious: No
  Sender: FDA-Public Use
  Company Number: US-ABBOTT-10P-163-0650411-00

PATIENT
  Sex: Female

DRUGS (7)
  1. HUMIRA [Suspect]
     Indication: RHEUMATOID ARTHRITIS
     Dates: start: 20100201
  2. MULTIVITAMIN [Concomitant]
  3. METHOTREXATE [Concomitant]
     Dosage: 8-2.5MG TABLETS WEEKLY
  4. CYCLOBENZAPRINE [Concomitant]
     Indication: MUSCLE SPASMS
     Dosage: 10MG AT NIGHT
     Route: 048
  5. TRAMADOL HCL [Concomitant]
     Indication: MUSCLE SPASMS
     Route: 048
  6. TEMAZEPAM [Concomitant]
     Indication: INSOMNIA
     Dosage: 30MG AT BEDTIME
     Route: 048
  7. NIFEDIPINE [Concomitant]
     Indication: BLOOD PRESSURE
     Route: 048

REACTIONS (4)
  - INJECTION SITE HAEMORRHAGE [None]
  - INJECTION SITE HAEMATOMA [None]
  - DEVICE MALFUNCTION [None]
  - INCORRECT DOSE ADMINISTERED [None]
